FAERS Safety Report 6487979-1 (Version None)
Quarter: 2009Q4

REPORT INFORMATION
  Report Type: 
  Country: None (occurrence: None)
  Receive Date: 20091210
  Receipt Date: 20091130
  Transmission Date: 20100525
  Serious: Yes (Other)
  Sender: FDA-Public Use
  Company Number: JP-JNJFOC-20091201823

PATIENT
  Age: 56 Year
  Sex: Female

DRUGS (2)
  1. REMICADE [Suspect]
     Indication: RHEUMATOID ARTHRITIS
     Dosage: 5TH DOSE
     Route: 042
  2. REMICADE [Suspect]
     Indication: ALLERGIC GRANULOMATOUS ANGIITIS
     Dosage: WEEK 0, 2, 3   140 MG/DAY
     Route: 042

REACTIONS (1)
  - CUTANEOUS LUPUS ERYTHEMATOSUS [None]
